FAERS Safety Report 16859267 (Version 1)
Quarter: 2019Q3

REPORT INFORMATION
  Report Type: Spontaneous
  Country: CO (occurrence: CO)
  Receive Date: 20190926
  Receipt Date: 20190926
  Transmission Date: 20191005
  Serious: Yes (Other)
  Sender: FDA-Public Use
  Company Number: CO-009507513-1909COL013441

PATIENT
  Age: 77 Year
  Sex: Male

DRUGS (1)
  1. PEMBROLIZUMAB. [Suspect]
     Active Substance: PEMBROLIZUMAB
     Dosage: 200 MG, UNKNOWN
     Route: 042

REACTIONS (2)
  - Malnutrition [Not Recovered/Not Resolved]
  - Metabolic disorder [Not Recovered/Not Resolved]
